FAERS Safety Report 8589260-3 (Version None)
Quarter: 2012Q3

REPORT INFORMATION
  Report Type: 
  Country: None (occurrence: None)
  Receive Date: 20120813
  Receipt Date: 20120803
  Transmission Date: 20120928
  Serious: Yes (Other)
  Sender: FDA-Public Use
  Company Number: IT-PFIZER INC-2012194458

PATIENT

DRUGS (1)
  1. CORDARONE [Suspect]
     Dosage: UNK
     Route: 065

REACTIONS (2)
  - PIGMENTATION DISORDER [None]
  - RETINOPATHY [None]
